FAERS Safety Report 17198329 (Version 1)
Quarter: 2019Q4

REPORT INFORMATION
  Report Type: Other
  Country: None (occurrence: CN)
  Receive Date: 20191225
  Receipt Date: 20191225
  Transmission Date: 20200122
  Serious: Yes (Hospitalization)
  Sender: FDA-Public Use
  Company Number: CN-JIANGSU HENGRUI MEDICINE CO., LTD.-2078176

PATIENT
  Age: 40 Year
  Sex: Female
  Weight: 68 kg

DRUGS (4)
  1. DOCETAXEL. [Suspect]
     Active Substance: DOCETAXEL
     Route: 041
     Dates: start: 20191122, end: 20191122
  2. CYCLOPHOSPHAMIDE FOR INJECTION USP, 500 MG, 1 G AND 2 G PER SINGLE-DOS [Suspect]
     Active Substance: CYCLOPHOSPHAMIDE
     Indication: CHEMOTHERAPY
     Route: 041
     Dates: start: 20191122, end: 20191122
  3. 0.9% SODIUM CHLORIDE INJECTION?SICHUAN KELUN PHARMACEUTICAL CO., LTD. [Concomitant]
     Route: 041
     Dates: start: 20191122, end: 20191122
  4. 0.9% SODIUM CHLORIDE INJECTION?HUNAN KELUN PHARMACEUTICAL CO., LTD. [Concomitant]
     Route: 041
     Dates: start: 20191122, end: 20191122

REACTIONS (5)
  - Nausea [Recovering/Resolving]
  - Oropharyngeal pain [Recovering/Resolving]
  - White blood cell count decreased [Recovering/Resolving]
  - Cough [Recovering/Resolving]
  - Decreased appetite [Recovering/Resolving]

NARRATIVE: CASE EVENT DATE: 20191129
